FAERS Safety Report 4966072-0 (Version None)
Quarter: 2006Q2

REPORT INFORMATION
  Report Type: 
  Country: None (occurrence: None)
  Receive Date: 20060403
  Receipt Date: 20060327
  Transmission Date: 20061013
  Serious: Yes (Hospitalization)
  Sender: FDA-Public Use
  Company Number: BR-2006-007170

PATIENT
  Sex: Female

DRUGS (1)
  1. MIRENA [Suspect]
     Indication: UTERINE HAEMORRHAGE
     Dosage: 20 UG/DAY, CONT, INTRA-UTERINE
     Route: 015
     Dates: start: 20050301

REACTIONS (2)
  - BREAST CANCER FEMALE [None]
  - UTERINE ENLARGEMENT [None]
